FAERS Safety Report 16654677 (Version 1)
Quarter: 2019Q3

REPORT INFORMATION
  Report Type: Spontaneous
  Country: US (occurrence: US)
  Receive Date: 20190801
  Receipt Date: 20190801
  Transmission Date: 20191004
  Serious: No
  Sender: FDA-Public Use
  Company Number: US-CELGENEUS-USA-20190709376

PATIENT
  Sex: Female

DRUGS (37)
  1. RENVELA [Concomitant]
     Active Substance: SEVELAMER CARBONATE
     Route: 065
  2. NEPHRO VITE RX [Concomitant]
     Active Substance: ASCORBIC ACID\BIOTIN\CALCIUM PANTOTHENATE\CYANOCOBALAMIN\FOLIC ACID\NIACINAMIDE\PYRIDOXINE HYDROCHLORIDE\RIBOFLAVIN\THIAMINE MONONITRATE
     Route: 065
  3. VELCADE [Concomitant]
     Active Substance: BORTEZOMIB
     Route: 065
  4. REVLIMID [Suspect]
     Active Substance: LENALIDOMIDE
     Indication: PLASMA CELL MYELOMA
     Dosage: 5 MILLIGRAM
     Route: 048
     Dates: start: 201603
  5. REVLIMID [Suspect]
     Active Substance: LENALIDOMIDE
     Dosage: 5 MILLIGRAM
     Route: 048
     Dates: start: 201610
  6. RENVELA [Concomitant]
     Active Substance: SEVELAMER CARBONATE
     Route: 065
  7. DEXAMETHASONE. [Concomitant]
     Active Substance: DEXAMETHASONE
     Route: 065
  8. LISINOPRIL. [Concomitant]
     Active Substance: LISINOPRIL
     Route: 065
  9. RENVELA [Concomitant]
     Active Substance: SEVELAMER CARBONATE
     Route: 065
  10. NEPHRO VITE RX [Concomitant]
     Active Substance: ASCORBIC ACID\BIOTIN\CALCIUM PANTOTHENATE\CYANOCOBALAMIN\FOLIC ACID\NIACINAMIDE\PYRIDOXINE HYDROCHLORIDE\RIBOFLAVIN\THIAMINE MONONITRATE
     Route: 065
  11. DEXAMETHASONE. [Concomitant]
     Active Substance: DEXAMETHASONE
     Indication: PRODUCT USED FOR UNKNOWN INDICATION
     Route: 065
  12. NEPHRO VITE RX [Concomitant]
     Active Substance: ASCORBIC ACID\BIOTIN\CALCIUM PANTOTHENATE\CYANOCOBALAMIN\FOLIC ACID\NIACINAMIDE\PYRIDOXINE HYDROCHLORIDE\RIBOFLAVIN\THIAMINE MONONITRATE
     Indication: PRODUCT USED FOR UNKNOWN INDICATION
     Route: 065
  13. DEXAMETHASONE. [Concomitant]
     Active Substance: DEXAMETHASONE
     Route: 065
  14. VELCADE [Concomitant]
     Active Substance: BORTEZOMIB
     Route: 065
  15. VELCADE [Concomitant]
     Active Substance: BORTEZOMIB
     Route: 065
  16. LISINOPRIL. [Concomitant]
     Active Substance: LISINOPRIL
     Route: 065
  17. LISINOPRIL. [Concomitant]
     Active Substance: LISINOPRIL
     Route: 065
  18. NEPHRO VITE RX [Concomitant]
     Active Substance: ASCORBIC ACID\BIOTIN\CALCIUM PANTOTHENATE\CYANOCOBALAMIN\FOLIC ACID\NIACINAMIDE\PYRIDOXINE HYDROCHLORIDE\RIBOFLAVIN\THIAMINE MONONITRATE
     Route: 065
  19. NEPHRO VITE RX [Concomitant]
     Active Substance: ASCORBIC ACID\BIOTIN\CALCIUM PANTOTHENATE\CYANOCOBALAMIN\FOLIC ACID\NIACINAMIDE\PYRIDOXINE HYDROCHLORIDE\RIBOFLAVIN\THIAMINE MONONITRATE
     Route: 065
  20. DEXAMETHASONE. [Concomitant]
     Active Substance: DEXAMETHASONE
     Route: 065
  21. VELCADE [Concomitant]
     Active Substance: BORTEZOMIB
     Route: 065
  22. LISINOPRIL. [Concomitant]
     Active Substance: LISINOPRIL
     Route: 065
  23. RENVELA [Concomitant]
     Active Substance: SEVELAMER CARBONATE
     Route: 065
  24. NEPHRO VITE RX [Concomitant]
     Active Substance: ASCORBIC ACID\BIOTIN\CALCIUM PANTOTHENATE\CYANOCOBALAMIN\FOLIC ACID\NIACINAMIDE\PYRIDOXINE HYDROCHLORIDE\RIBOFLAVIN\THIAMINE MONONITRATE
     Route: 065
  25. VELCADE [Concomitant]
     Active Substance: BORTEZOMIB
     Indication: PRODUCT USED FOR UNKNOWN INDICATION
     Route: 065
  26. LISINOPRIL. [Concomitant]
     Active Substance: LISINOPRIL
     Route: 065
  27. RENVELA [Concomitant]
     Active Substance: SEVELAMER CARBONATE
     Route: 065
  28. RENVELA [Concomitant]
     Active Substance: SEVELAMER CARBONATE
     Route: 065
  29. DEXAMETHASONE. [Concomitant]
     Active Substance: DEXAMETHASONE
     Route: 065
  30. DEXAMETHASONE. [Concomitant]
     Active Substance: DEXAMETHASONE
     Route: 065
  31. VELCADE [Concomitant]
     Active Substance: BORTEZOMIB
     Route: 065
  32. RENVELA [Concomitant]
     Active Substance: SEVELAMER CARBONATE
     Indication: PRODUCT USED FOR UNKNOWN INDICATION
     Route: 065
  33. NEPHRO VITE RX [Concomitant]
     Active Substance: ASCORBIC ACID\BIOTIN\CALCIUM PANTOTHENATE\CYANOCOBALAMIN\FOLIC ACID\NIACINAMIDE\PYRIDOXINE HYDROCHLORIDE\RIBOFLAVIN\THIAMINE MONONITRATE
     Route: 065
  34. DEXAMETHASONE. [Concomitant]
     Active Substance: DEXAMETHASONE
     Route: 065
  35. VELCADE [Concomitant]
     Active Substance: BORTEZOMIB
     Route: 065
  36. LISINOPRIL. [Concomitant]
     Active Substance: LISINOPRIL
     Indication: PRODUCT USED FOR UNKNOWN INDICATION
     Route: 065
  37. LISINOPRIL. [Concomitant]
     Active Substance: LISINOPRIL
     Route: 065

REACTIONS (2)
  - Therapeutic product effect decreased [Unknown]
  - Plasma cell myeloma [Unknown]
